FAERS Safety Report 8666115 (Version 5)
Quarter: 2013Q3

REPORT INFORMATION
  Report Type: Report from Study
  Country: JP (occurrence: JP)
  Receive Date: 20120716
  Receipt Date: 20130903
  Transmission Date: 20140515
  Serious: Yes (Other)
  Sender: FDA-Public Use
  Company Number: JP-VERTEX PHARMACEUTICALS INC.-AE-2012-010021

PATIENT
  Age: 57 Year
  Sex: Male

DRUGS (9)
  1. VX-950 (TELAPREVIR) [Suspect]
     Indication: CHRONIC HEPATITIS C
     Dosage: 2250 MG, QD
     Route: 048
     Dates: start: 20120606, end: 20120829
  2. PEGINTRON [Suspect]
     Indication: CHRONIC HEPATITIS C
     Dosage: 1.5 ?G/KG, WEEK
     Route: 058
     Dates: start: 20120606, end: 20120613
  3. PEGINTRON [Suspect]
     Dosage: 0.8 ?G/KG, WEEK
     Route: 058
     Dates: start: 20120620
  4. PEGINTRON [Suspect]
     Dosage: 0.77 ?G/KG, WEEK
     Route: 058
     Dates: end: 20121114
  5. REBETOL [Suspect]
     Indication: CHRONIC HEPATITIS C
     Dosage: 800 MG, QD
     Route: 048
     Dates: start: 20120606, end: 20120620
  6. REBETOL [Suspect]
     Dosage: 400 MG, QD
     Route: 048
     Dates: start: 20120620, end: 20121121
  7. LOXOPROFEN SODIUM [Concomitant]
     Dosage: 60 MG, QD/PRN
     Route: 048
     Dates: start: 20120606
  8. LENDEM [Concomitant]
     Dosage: 0.25 MG, QD/PRN
     Route: 048
     Dates: start: 20111130
  9. LENDORMIN D [Concomitant]
     Dosage: 0.25 MG, QD/PRN
     Route: 048

REACTIONS (2)
  - Erythema multiforme [Recovered/Resolved]
  - Sudden hearing loss [Recovered/Resolved]
